FAERS Safety Report 10476562 (Version 9)
Quarter: 2015Q2

REPORT INFORMATION
  Report Type: Spontaneous
  Country: US (occurrence: None)
  Receive Date: 20140923
  Receipt Date: 20150612
  Transmission Date: 20150821
  Serious: Yes (Death, Life-Threatening, Hospitalization, Other)
  Sender: FDA-Public Use
  Company Number: 2014SGN01130

PATIENT
  Age: 72 Year
  Sex: Female
  Weight: 30.8 kg

DRUGS (20)
  1. ALLOPURINOL (ALLOPURINOL) [Concomitant]
     Active Substance: ALLOPURINOL
  2. LOSARTAN (LOSARTAN) [Concomitant]
     Active Substance: LOSARTAN
  3. LYRICA [Concomitant]
     Active Substance: PREGABALIN
  4. PROTONIX [Concomitant]
     Active Substance: PANTOPRAZOLE SODIUM
  5. PREDNISONE. [Suspect]
     Active Substance: PREDNISONE
     Indication: DIFFUSE LARGE B-CELL LYMPHOMA
     Dosage: 500 MG, QCYCLE
     Route: 048
     Dates: start: 20140829, end: 20140902
  6. ACYCLOVIR (ACYCLOVIR) [Concomitant]
     Active Substance: ACYCLOVIR
  7. DIFLUCAN [Concomitant]
     Active Substance: FLUCONAZOLE
  8. ZOFRAN (ONDANSETRON) [Concomitant]
  9. XANAX [Concomitant]
     Active Substance: ALPRAZOLAM
  10. RITUXIMAB [Suspect]
     Active Substance: RITUXIMAB
     Indication: DIFFUSE LARGE B-CELL LYMPHOMA
     Dosage: 375 MG/KG, Q21D
     Route: 042
     Dates: start: 20140829, end: 20140829
  11. VINCRISTINE (VINCRISTINE) INJECTION [Suspect]
     Active Substance: VINCRISTINE
     Indication: DIFFUSE LARGE B-CELL LYMPHOMA
     Dosage: 1.4 MG/KG, Q21D
     Route: 042
     Dates: start: 20140829, end: 20140829
  12. NEULASTA [Concomitant]
     Active Substance: PEGFILGRASTIM
  13. NIFEDIPINE (NIFEDIPINE) (NIFEDIPINE) [Concomitant]
     Active Substance: NIFEDIPINE
  14. BRENTUXIMAB VEDOTIN [Suspect]
     Active Substance: BRENTUXIMAB VEDOTIN
     Indication: DIFFUSE LARGE B-CELL LYMPHOMA
     Dosage: 1.8 MG/KG, Q21D
     Route: 042
     Dates: start: 20140829, end: 20140829
  15. ATORVASTATIN (ATORVASTATIN) [Concomitant]
     Active Substance: ATORVASTATIN
  16. LEVAQUIN [Concomitant]
     Active Substance: LEVOFLOXACIN
  17. CYCLOPHOSPHAMIDE. [Suspect]
     Active Substance: CYCLOPHOSPHAMIDE
     Indication: DIFFUSE LARGE B-CELL LYMPHOMA
     Dosage: 750 MG/KG, Q21D
     Route: 042
     Dates: start: 20140829, end: 20140829
  18. COMPAZINE [Concomitant]
     Active Substance: PROCHLORPERAZINE MALEATE
  19. CYMBALTA [Concomitant]
     Active Substance: DULOXETINE HYDROCHLORIDE
  20. DOXORUBICIN (DOXORUBICIN) INJECTION [Suspect]
     Active Substance: DOXORUBICIN
     Indication: DIFFUSE LARGE B-CELL LYMPHOMA
     Dosage: 50 MG/KG, Q21D
     Route: 042
     Dates: start: 20140829, end: 20140829

REACTIONS (48)
  - Neutropenia [None]
  - White blood cell count decreased [None]
  - Abdominal adhesions [None]
  - Haemoglobin decreased [None]
  - Atrial fibrillation [None]
  - Hypotension [None]
  - Renal failure [None]
  - Candida test positive [None]
  - Blood potassium decreased [None]
  - Blood uric acid decreased [None]
  - Prothrombin time prolonged [None]
  - Urine ketone body present [None]
  - Renal tubular necrosis [None]
  - Haemodynamic instability [None]
  - Large intestinal obstruction [None]
  - Haematocrit decreased [None]
  - Blood magnesium increased [None]
  - Electrocardiogram QRS complex abnormal [None]
  - Electrocardiogram T wave abnormal [None]
  - Pulse absent [None]
  - Respiratory arrest [None]
  - Bacterial test positive [None]
  - Atelectasis [None]
  - Blood lactate dehydrogenase increased [None]
  - Shock [None]
  - Continuous haemodiafiltration [None]
  - Respiratory failure [None]
  - Faeces hard [None]
  - Blood alkaline phosphatase increased [None]
  - Blood chloride increased [None]
  - Protein urine present [None]
  - Sinus tachycardia [None]
  - Pleural effusion [None]
  - Activated partial thromboplastin time prolonged [None]
  - Fibrin D dimer increased [None]
  - White blood cells urine positive [None]
  - Urinary sediment present [None]
  - Troponin increased [None]
  - Acute kidney injury [None]
  - Dehydration [None]
  - Platelet count decreased [None]
  - Supraventricular extrasystoles [None]
  - Acute respiratory failure [None]
  - Aspiration [None]
  - Red blood cells urine positive [None]
  - Stevens-Johnson syndrome [None]
  - Alanine aminotransferase increased [None]
  - Sepsis [None]

NARRATIVE: CASE EVENT DATE: 20140905
